FAERS Safety Report 7999686-4 (Version None)
Quarter: 2011Q4

REPORT INFORMATION
  Report Type: 
  Country: None (occurrence: None)
  Receive Date: 20111221
  Receipt Date: 20111213
  Transmission Date: 20120403
  Serious: Yes (Other)
  Sender: FDA-Public Use
  Company Number: BR-ASTRAZENECA-2011SE75250

PATIENT
  Age: 59 Year
  Sex: Female
  Weight: 46 kg

DRUGS (1)
  1. BUDESONIDE [Suspect]
     Indication: RHINITIS
     Route: 045
     Dates: start: 20040101

REACTIONS (1)
  - BREAST CANCER [None]
